FAERS Safety Report 6075711-5 (Version None)
Quarter: 2009Q1

REPORT INFORMATION
  Report Type: 
  Country: None (occurrence: None)
  Receive Date: 20090212
  Receipt Date: 20081204
  Transmission Date: 20090719
  Serious: Yes (Hospitalization, Disabling)
  Sender: FDA-Public Use
  Company Number: FR-MERCK-0811FRA00011

PATIENT
  Age: 65 Year
  Sex: Male

DRUGS (10)
  1. ISENTRESS [Suspect]
     Indication: HIV INFECTION
     Route: 048
     Dates: start: 20080708
  2. ETRAVIRINE [Concomitant]
     Indication: HIV INFECTION
     Route: 048
     Dates: start: 20080902
  3. MARAVIROC [Suspect]
     Indication: HIV INFECTION
     Route: 048
     Dates: start: 20080902
  4. CLOPIDOGREL BISULFATE [Concomitant]
     Route: 048
     Dates: start: 20010625
  5. CITALOPRAM [Concomitant]
     Route: 048
     Dates: start: 20050429
  6. OMEPRAZOLE [Concomitant]
     Route: 048
     Dates: start: 20061128
  7. ZOPICLONE [Concomitant]
     Route: 048
  8. ISOSORBIDE DINITRATE [Concomitant]
     Route: 065
     Dates: start: 20080605
  9. BROMAZEPAM [Concomitant]
     Route: 048
     Dates: start: 20080708
  10. [THERAPY UNSPECIFIED] [Concomitant]
     Route: 048
     Dates: start: 20081013

REACTIONS (6)
  - CHOLELITHIASIS [None]
  - HEPATITIS CHOLESTATIC [None]
  - HYPOXIA [None]
  - LUNG DISORDER [None]
  - RENAL FAILURE [None]
  - THROMBOCYTOPENIA [None]
